FAERS Safety Report 15645786 (Version 1)
Quarter: 2018Q4

REPORT INFORMATION
  Report Type: Spontaneous
  Country: FR (occurrence: FR)
  Receive Date: 20181121
  Receipt Date: 20181121
  Transmission Date: 20190205
  Serious: Yes (Life-Threatening, Hospitalization)
  Sender: FDA-Public Use
  Company Number: PHHY2018FR159779

PATIENT
  Age: 49 Year
  Sex: Female
  Weight: 80 kg

DRUGS (1)
  1. AMOXICILLINE HEXAL [Suspect]
     Active Substance: AMOXICILLIN
     Indication: ALLERGY TEST
     Route: 042

REACTIONS (4)
  - Generalised erythema [Recovered/Resolved]
  - Hypotension [Recovered/Resolved]
  - Laryngeal oedema [Recovered/Resolved]
  - Dyspnoea [Recovered/Resolved]

NARRATIVE: CASE EVENT DATE: 20180928
